FAERS Safety Report 25236092 (Version 1)
Quarter: 2025Q2

REPORT INFORMATION
  Report Type: Spontaneous
  Country: US (occurrence: US)
  Receive Date: 20250424
  Receipt Date: 20250424
  Transmission Date: 20250716
  Serious: Yes (Other)
  Sender: VIIV
  Company Number: US-VIIV HEALTHCARE-US2025047839

PATIENT

DRUGS (7)
  1. JULUCA [Suspect]
     Active Substance: DOLUTEGRAVIR SODIUM\RILPIVIRINE HYDROCHLORIDE
     Indication: HIV infection
     Dates: start: 202304
  2. ABACAVIR [Interacting]
     Active Substance: ABACAVIR
     Indication: HIV infection
     Route: 048
     Dates: end: 2023
  3. ENVARSUS XR [Interacting]
     Active Substance: TACROLIMUS
     Indication: Kidney transplant rejection
     Dates: start: 20221030
  4. ENVARSUS XR [Interacting]
     Active Substance: TACROLIMUS
     Indication: Kidney transplant rejection
     Dates: start: 20221030
  5. MYCOPHENOLIC ACID [Interacting]
     Active Substance: MYCOPHENOLIC ACID
     Indication: Kidney transplant rejection
     Dates: start: 20221029
  6. PREDNISONE [Suspect]
     Active Substance: PREDNISONE
     Indication: Kidney transplant rejection
     Dates: start: 20221030
  7. METOPROLOL TARTRATE [Concomitant]
     Active Substance: METOPROLOL TARTRATE
     Indication: Hypertension
     Dates: start: 20221030

REACTIONS (4)
  - Renal transplant [Unknown]
  - Drug interaction [Unknown]
  - Drug ineffective [Unknown]
  - Product dose omission issue [Unknown]

NARRATIVE: CASE EVENT DATE: 20221029
